FAERS Safety Report 9779684 (Version 1)
Quarter: 2013Q4

REPORT INFORMATION
  Report Type: Spontaneous
  Country: US (occurrence: US)
  Receive Date: 20131223
  Receipt Date: 20131223
  Transmission Date: 20140711
  Serious: No
  Sender: FDA-Public Use
  Company Number: US-TEVA-450996USA

PATIENT
  Age: 57 Year
  Sex: Male
  Weight: 49.49 kg

DRUGS (4)
  1. PROAIR HFA [Suspect]
     Indication: ASTHMA
     Dates: end: 20131211
  2. NEURONTIN [Concomitant]
  3. TYLENOL [Concomitant]
  4. ASPIRIN [Concomitant]

REACTIONS (9)
  - Heart rate increased [Recovered/Resolved]
  - Lung disorder [Recovered/Resolved]
  - Musculoskeletal chest pain [Recovered/Resolved]
  - Dyspnoea [Recovered/Resolved]
  - Oropharyngeal pain [Recovered/Resolved]
  - Headache [Recovered/Resolved]
  - Urticaria [Recovered/Resolved]
  - Malaise [Recovered/Resolved]
  - Nasopharyngitis [Recovered/Resolved]
